FAERS Safety Report 14526260 (Version 1)
Quarter: 2018Q1

REPORT INFORMATION
  Report Type: Spontaneous
  Country: ES (occurrence: ES)
  Receive Date: 20180213
  Receipt Date: 20180213
  Transmission Date: 20180509
  Serious: Yes (Hospitalization)
  Sender: FDA-Public Use
  Company Number: ES-TEVA-2018-ES-854865

PATIENT
  Age: 72 Year
  Sex: Male

DRUGS (8)
  1. RELVAR ELLIPTA 184/22MCG INHALACION [Concomitant]
     Indication: ASTHMA
     Dosage: 1 INH C/24H
     Route: 055
     Dates: start: 20160523
  2. AZITROMICINA TEVA 500MG [Suspect]
     Active Substance: AZITHROMYCIN
     Indication: PROPHYLAXIS
     Dosage: AZITROMICINA 500MG (1-0-0, MONDAY, WEDNESDAY, FRIDAY)
     Route: 048
     Dates: start: 20161103
  3. INCRUSE 55MCG POLVO PARA INHALACION [Concomitant]
     Indication: ASTHMA
     Dosage: 1 INH C/24H
     Route: 055
     Dates: start: 20160523
  4. ZARZIO 30 MU/0,5 ML JERINGA PRECARGADA [Concomitant]
     Indication: NEUTROPENIA
     Dosage: 30 MU/0,5 ML
     Route: 058
     Dates: start: 20150520
  5. ACIDO ACETILSALICILICO 100 MG [Concomitant]
     Dosage: 100 MILLIGRAM DAILY; 100 MG C/247H
     Route: 048
     Dates: start: 20160717
  6. IMBRUVICA [Suspect]
     Active Substance: IBRUTINIB
     Indication: CHRONIC LYMPHOCYTIC LEUKAEMIA
     Dosage: 320 MG C/24H
     Route: 048
     Dates: start: 20150520, end: 20171024
  7. PREDNISONA ALONGA 5 5MG [Concomitant]
     Dosage: 5 MG C/24H
     Route: 048
     Dates: start: 2016
  8. SINGULAIR 10MG 28 COMPRIMIDOS RECUBIERTOS CON PELICULA [Concomitant]
     Dosage: 10 MILLIGRAM DAILY; 10 MG C/24H
     Route: 048
     Dates: start: 20160331

REACTIONS (2)
  - Superinfection [Recovering/Resolving]
  - Asthma [Recovering/Resolving]

NARRATIVE: CASE EVENT DATE: 20161102
